FAERS Safety Report 8802781 (Version 1)
Quarter: 2012Q4

REPORT INFORMATION
  Report Type: Report from Study
  Country: IN (occurrence: IN)
  Receive Date: 20120921
  Receipt Date: 20120921
  Transmission Date: 20130627
  Serious: Yes (Death)
  Sender: FDA-Public Use
  Company Number: IN-MERCK-1209IND007049

PATIENT
  Sex: Female

DRUGS (1)
  1. MK-0683 [Suspect]
     Indication: MYCOSIS FUNGOIDES
     Dosage: 7 doses used
     Route: 048
     Dates: start: 2012, end: 2012

REACTIONS (2)
  - Death [Fatal]
  - Renal impairment [Unknown]
